FAERS Safety Report 11632358 (Version 1)
Quarter: 2015Q4

REPORT INFORMATION
  Report Type: Spontaneous
  Country: US (occurrence: None)
  Receive Date: 20151014
  Receipt Date: 20151014
  Transmission Date: 20160304
  Serious: No
  Sender: FDA-Public Use
  Company Number: None

PATIENT
  Age: 45 Year
  Sex: Male
  Weight: 104.33 kg

DRUGS (3)
  1. BUPROPRION HCL [Suspect]
     Active Substance: BUPROPION HYDROCHLORIDE
     Indication: DEPRESSION
     Dosage: 3 PILLS
     Route: 048
     Dates: start: 20150912, end: 20151013
  2. BUPROPRION HCL [Suspect]
     Active Substance: BUPROPION HYDROCHLORIDE
     Indication: ANXIETY
     Dosage: 3 PILLS
     Route: 048
     Dates: start: 20150912, end: 20151013
  3. BUPROPRION HCL [Suspect]
     Active Substance: BUPROPION HYDROCHLORIDE
     Indication: STRESS
     Dosage: 3 PILLS
     Route: 048
     Dates: start: 20150912, end: 20151013

REACTIONS (7)
  - Weight increased [None]
  - Hypersomnia [None]
  - Product substitution issue [None]
  - Hyperphagia [None]
  - Depression [None]
  - Lethargy [None]
  - Drug ineffective [None]

NARRATIVE: CASE EVENT DATE: 20151013
